FAERS Safety Report 7632565-0 (Version None)
Quarter: 2011Q3

REPORT INFORMATION
  Report Type: 
  Country: None (occurrence: None)
  Receive Date: 20110725
  Receipt Date: 20101014
  Transmission Date: 20111222
  Serious: No
  Sender: FDA-Public Use
  Company Number: US-BRISTOL-MYERS SQUIBB COMPANY-15334758

PATIENT
  Age: 35 Year
  Sex: Female
  Weight: 52 kg

DRUGS (12)
  1. HEPARIN SODIUM [Suspect]
     Indication: ACUTE MYOCARDIAL INFARCTION
     Route: 042
     Dates: start: 20080515, end: 20080515
  2. RESTASIS [Concomitant]
  3. COUMADIN [Suspect]
     Indication: ANTICOAGULANT THERAPY
     Dosage: 1DF:10MG AND 7.5MG
     Route: 048
     Dates: start: 20080517, end: 20080517
  4. ZOFRAN [Concomitant]
  5. HEPARIN SODIUM 25,000 UNITS IN DEXTROSE 5% [Suspect]
     Indication: ANTICOAGULANT THERAPY
     Dosage: HEPARIN SODIUM IN 5% DEXTROSE IJECTION (50U/ML)
     Route: 042
     Dates: start: 20080516, end: 20080518
  6. ACETAMINOPHEN WITH PROPOXYPHENE HCL TAB [Concomitant]
  7. PRAVACHOL [Concomitant]
  8. LOPRESSOR [Concomitant]
  9. ORTHO TRI-CYCLEN [Concomitant]
  10. PRILOSEC [Concomitant]
  11. ASPIRIN [Concomitant]
     Dosage: ASPIRIN BAYER
  12. COREG [Concomitant]

REACTIONS (2)
  - HYPOTENSION [None]
  - HAEMATURIA [None]
